FAERS Safety Report 15180263 (Version 1)
Quarter: 2018Q3

REPORT INFORMATION
  Report Type: Spontaneous
  Country: IT (occurrence: IT)
  Receive Date: 20180723
  Receipt Date: 20180723
  Transmission Date: 20181010
  Serious: Yes (Other)
  Sender: FDA-Public Use
  Company Number: IT-BAYER-2018-134934

PATIENT
  Age: 50 Year
  Sex: Male

DRUGS (1)
  1. ACETYLSALICYLIC ACID({=100 MG) [Suspect]
     Active Substance: ASPIRIN
     Dosage: UNK

REACTIONS (6)
  - Diverticulum intestinal haemorrhagic [None]
  - Labelled drug-drug interaction medication error [None]
  - Hypovolaemic shock [None]
  - Haematochezia [None]
  - Anaemia [None]
  - Contraindicated product administered [None]
